FAERS Safety Report 5489717-8 (Version None)
Quarter: 2007Q4

REPORT INFORMATION
  Report Type: 
  Country: None (occurrence: None)
  Receive Date: 20071009
  Receipt Date: 20061019
  Transmission Date: 20080405
  Serious: Yes (Other)
  Sender: FDA-Public Use
  Company Number: US-JNJFOC-20061005002

PATIENT
  Age: 13 Month
  Sex: Female
  Weight: 9.0719 kg

DRUGS (3)
  1. MICRONOR [Suspect]
     Indication: DRUG EXPOSURE VIA BREAST MILK
     Dosage: 1 DOSE (S), 1 IN 1 DAY, TRANSMAMMARY
     Route: 063
     Dates: start: 20050101, end: 20060101
  2. AMOXICILLIN [Concomitant]
  3. ORAL CONTRACEPTIVE NOS (ORAL CONTRACEPTIVE NOS) [Concomitant]

REACTIONS (3)
  - DRUG EXPOSURE VIA BREAST MILK [None]
  - UPPER RESPIRATORY TRACT INFECTION [None]
  - VAGINAL HAEMORRHAGE [None]
